FAERS Safety Report 6767727-8 (Version None)
Quarter: 2010Q2

REPORT INFORMATION
  Report Type: 
  Country: None (occurrence: None)
  Receive Date: 20100614
  Receipt Date: 20100607
  Transmission Date: 20101027
  Serious: Yes (Life-Threatening)
  Sender: FDA-Public Use
  Company Number: JP-ROCHE-704400

PATIENT
  Sex: Female
  Weight: 33 kg

DRUGS (1)
  1. HERCEPTIN [Suspect]
     Indication: BREAST CANCER
     Dosage: DOSE: 4 MG/KG, ONCE DAILY
     Route: 041
     Dates: start: 20100513, end: 20100513

REACTIONS (3)
  - ANAPHYLACTOID REACTION [None]
  - BLOOD PRESSURE FLUCTUATION [None]
  - DYSPNOEA [None]
